FAERS Safety Report 5406932-X (Version None)
Quarter: 2007Q3

REPORT INFORMATION
  Report Type: 
  Country: None (occurrence: None)
  Receive Date: 20070803
  Receipt Date: 20070803
  Transmission Date: 20080115
  Serious: Yes (Death)
  Sender: FDA-Public Use
  Company Number: None

PATIENT
  Age: 75 Year
  Sex: Female
  Weight: 78 kg

DRUGS (15)
  1. BLEOMYCIN [Suspect]
     Indication: HODGKIN'S DISEASE
     Dosage: 20 UNITS Q 14 DAYS IV BOLUS
     Route: 040
     Dates: start: 20070322, end: 20070605
  2. LANTUS [Concomitant]
  3. MULTI-VITAMIN [Concomitant]
  4. ASPIRIN [Concomitant]
  5. CLONIDINE [Concomitant]
  6. CHLORPROPAMIDE [Concomitant]
  7. PRILOSEC [Concomitant]
  8. ZOLOFT [Concomitant]
  9. METFORMIN HCL [Concomitant]
  10. HYDROCHLOROTHIAZIDE [Concomitant]
  11. PHENERGAN HCL [Concomitant]
  12. LORTAB [Concomitant]
  13. ADRIAMYCIN PFS [Concomitant]
  14. VINBLASTINE SULFATE [Concomitant]
  15. DACARBAZINE [Concomitant]

REACTIONS (2)
  - PULMONARY TOXICITY [None]
  - SYNCOPE [None]
